FAERS Safety Report 14712324 (Version 1)
Quarter: 2018Q2

REPORT INFORMATION
  Report Type: Spontaneous
  Country: US (occurrence: US)
  Receive Date: 20180404
  Receipt Date: 20180404
  Transmission Date: 20180711
  Serious: Yes (Hospitalization)
  Sender: FDA-Public Use
  Company Number: US-BEH-2018089274

PATIENT
  Age: 63 Year
  Sex: Female
  Weight: 77.98 kg

DRUGS (19)
  1. METHOCARBAMOL. [Concomitant]
     Active Substance: METHOCARBAMOL
  2. EPINEPHRINE. [Concomitant]
     Active Substance: EPINEPHRINE
  3. IBUPROFEN. [Concomitant]
     Active Substance: IBUPROFEN
  4. PRIVIGEN [Suspect]
     Active Substance: HUMAN IMMUNOGLOBULIN G
     Indication: CONGENITAL ANOMALY
     Dosage: UNK
     Route: 042
  5. DIFLUCAN [Concomitant]
     Active Substance: FLUCONAZOLE
  6. AMLODIPINE [Concomitant]
     Active Substance: AMLODIPINE BESYLATE
  7. ACETAMINOPHEN. [Concomitant]
     Active Substance: ACETAMINOPHEN
  8. TRAMADOL. [Concomitant]
     Active Substance: TRAMADOL
  9. FLONASE [Concomitant]
     Active Substance: FLUTICASONE PROPIONATE
  10. PULMICORT TURBUHALER [Concomitant]
     Active Substance: BUDESONIDE
  11. ZYRTEC [Concomitant]
     Active Substance: CETIRIZINE HYDROCHLORIDE
  12. PRIVIGEN [Suspect]
     Active Substance: HUMAN IMMUNOGLOBULIN G
     Indication: IMMUNODEFICIENCY
     Dosage: 20 G, QMT
     Route: 042
     Dates: start: 20170524
  13. ALBUTEROL                          /00139501/ [Concomitant]
     Active Substance: ALBUTEROL
  14. SODIUM CHLORIDE. [Concomitant]
     Active Substance: SODIUM CHLORIDE
  15. DALIRESP [Concomitant]
     Active Substance: ROFLUMILAST
  16. KLONOPIN [Concomitant]
     Active Substance: CLONAZEPAM
  17. LIPITOR [Concomitant]
     Active Substance: ATORVASTATIN CALCIUM
  18. TYLENOL EXTRA STRENGTH [Concomitant]
     Active Substance: ACETAMINOPHEN
  19. DIPHENHYDRAMINE. [Concomitant]
     Active Substance: DIPHENHYDRAMINE

REACTIONS (2)
  - Rectal haemorrhage [Recovered/Resolved]
  - Colitis [Recovered/Resolved]

NARRATIVE: CASE EVENT DATE: 20180315
